FAERS Safety Report 4852033-9 (Version None)
Quarter: 2005Q4

REPORT INFORMATION
  Report Type: 
  Country: None (occurrence: None)
  Receive Date: 20051213
  Receipt Date: 20051201
  Transmission Date: 20060501
  Serious: Yes (Hospitalization)
  Sender: FDA-Public Use
  Company Number: AU-BRISTOL-MYERS SQUIBB COMPANY-13200555

PATIENT
  Sex: Male

DRUGS (2)
  1. ABILIFY [Suspect]
     Route: 048
  2. OLANZAPINE [Concomitant]

REACTIONS (3)
  - AGITATION [None]
  - INSOMNIA [None]
  - SELF MUTILATION [None]
